FAERS Safety Report 22169696 (Version 6)
Quarter: 2025Q4

REPORT INFORMATION
  Report Type: Spontaneous
  Country: EU (occurrence: EU)
  Receive Date: 20230404
  Receipt Date: 20251020
  Transmission Date: 20260117
  Serious: Yes (Life-Threatening, Hospitalization, Other)
  Sender: SANOFI AVENTIS
  Company Number: None

PATIENT
  Age: 55 Year
  Sex: Male

DRUGS (28)
  1. DOXORUBICIN [Suspect]
     Active Substance: DOXORUBICIN
     Indication: Diffuse large B-cell lymphoma
     Dosage: UNK (1 CURE)(DOSE DESCRIPTION : 1 COURSE)
     Route: 045
     Dates: start: 20221227
  2. LOVENOX [Suspect]
     Active Substance: ENOXAPARIN SODIUM
     Indication: Prophylaxis
     Dosage: 4000 IU
     Route: 058
     Dates: start: 20230210
  3. LOVENOX [Suspect]
     Active Substance: ENOXAPARIN SODIUM
     Indication: Constipation
  4. MORPHINE SULFATE [Suspect]
     Active Substance: MORPHINE SULFATE
     Indication: Pain
     Dosage: 30 MG, BID (1 TAB SKENAN LP30MG EVERY 12 HOURS)
     Route: 048
     Dates: start: 20230210, end: 20230218
  5. MORPHINE SULFATE [Suspect]
     Active Substance: MORPHINE SULFATE
     Dosage: 1 DF, Q12H
     Route: 048
     Dates: start: 20230218, end: 20230218
  6. CASPOFUNGIN ACETATE [Suspect]
     Active Substance: CASPOFUNGIN ACETATE
     Indication: Fungal infection
     Dosage: 70 MG
     Route: 042
     Dates: start: 20230126
  7. LEUCOVORIN CALCIUM [Suspect]
     Active Substance: LEUCOVORIN CALCIUM
     Indication: Prophylaxis
     Dosage: 1 DF, QW
     Route: 048
     Dates: start: 20230102
  8. LEUCOVORIN CALCIUM [Suspect]
     Active Substance: LEUCOVORIN CALCIUM
     Dosage: 2 DF, 0.5 WEEK (A TAB EVERY MONDAY AND THURSDAY)
     Route: 048
     Dates: start: 20230102
  9. ALPRAZOLAM [Suspect]
     Active Substance: ALPRAZOLAM
     Indication: Anxiety
     Dosage: 1 DF (1TAB 0.25MG IF ANGUISH)
     Route: 048
     Dates: start: 20230106, end: 20230209
  10. ALPRAZOLAM [Suspect]
     Active Substance: ALPRAZOLAM
     Dosage: 1 DF
     Route: 048
     Dates: start: 20230106, end: 20230209
  11. VALACYCLOVIR HYDROCHLORIDE [Suspect]
     Active Substance: VALACYCLOVIR HYDROCHLORIDE
     Indication: Bacterial infection
     Dosage: 500 MG, BID (1,000 MG PER DAY, 500 MG MORNING AND EVEVING 500 MG TWICE PER DAY)
     Route: 048
     Dates: start: 20230106
  12. VALACYCLOVIR HYDROCHLORIDE [Suspect]
     Active Substance: VALACYCLOVIR HYDROCHLORIDE
     Dosage: 1000 MILLIGRAM, QD, 500MG MOR AND EVE
     Route: 048
     Dates: start: 20230106
  13. VINCRISTINE SULFATE [Suspect]
     Active Substance: VINCRISTINE SULFATE
     Indication: Diffuse large B-cell lymphoma
     Dosage: UNK (DOSE DESCRIPTION: 1 CURE, 1 COURSE, 1 ROUND)
     Dates: start: 20221227
  14. PANTOPRAZOLE SODIUM [Suspect]
     Active Substance: PANTOPRAZOLE SODIUM
     Indication: Gastritis prophylaxis
     Dosage: 20 MG
     Route: 048
     Dates: start: 20230106
  15. PANTOPRAZOLE SODIUM [Suspect]
     Active Substance: PANTOPRAZOLE SODIUM
     Indication: Constipation
  16. CEFTRIAXONE SODIUM [Suspect]
     Active Substance: CEFTRIAXONE SODIUM
     Indication: Bacterial infection
     Dosage: 2 G, BID (1G MORNING AND EVENING)
     Route: 048
     Dates: start: 20230209
  17. CYCLOPHOSPHAMIDE [Suspect]
     Active Substance: CYCLOPHOSPHAMIDE
     Indication: Diffuse large B-cell lymphoma
     Dosage: UNK (DOSE DESCRIPTION : 1 COURSE)
     Route: 048
     Dates: start: 20221227
  18. CIPROFLOXACIN [Suspect]
     Active Substance: CIPROFLOXACIN
     Indication: Bacterial infection
     Dosage: UNK
     Dates: start: 20230203, end: 20230208
  19. ACETAMINOPHEN [Suspect]
     Active Substance: ACETAMINOPHEN
     Indication: Pain
     Dosage: 1 DF, Q6H (1 DOSAGE FORM EVERY 6 H (1 TABLET EVERY 6 H, MAXIMUM 3 TABLETS PER DAY)
     Route: 048
     Dates: start: 20230211
  20. METRONIDAZOLE [Suspect]
     Active Substance: METRONIDAZOLE
     Indication: Bacterial infection
     Dosage: 1500 MG, TID (500 MG MORNING, NOON AND EVENING)
     Route: 048
     Dates: start: 20230209, end: 20230303
  21. NALOXEGOL OXALATE [Suspect]
     Active Substance: NALOXEGOL OXALATE
     Indication: Constipation
     Dosage: 25 MG, PRN
     Route: 048
     Dates: start: 20230211
  22. CILASTATIN SODIUM\IMIPENEM [Suspect]
     Active Substance: CILASTATIN SODIUM\IMIPENEM
     Indication: Bacterial infection
     Dosage: 800 MG, QD ((1 INJECTION 800 MILLIGRAM, QD, 500MG/500M)
     Route: 042
     Dates: start: 20230114, end: 20230208
  23. BACTRIM [Suspect]
     Active Substance: SULFAMETHOXAZOLE\TRIMETHOPRIM
     Indication: Bacterial infection
     Dosage: 400 MILLIGRAM, QD (1 DF, 1 TAB IN THE MORNING)
     Route: 048
     Dates: start: 20230106, end: 20230303
  24. RITUXIMAB [Suspect]
     Active Substance: RITUXIMAB
     Indication: Diffuse large B-cell lymphoma
     Dosage: UNK (1 COURSE)
     Route: 042
     Dates: start: 20221227
  25. AMITRIPTYLINE HYDROCHLORIDE [Suspect]
     Active Substance: AMITRIPTYLINE HYDROCHLORIDE
     Indication: Pain
     Dosage: 35 DROP, QD (1/12 MILLILITRE PER DAY 35 DROPS, 5 DROPS MORNING AND 10 DROPS NOON AND EVENING)
     Route: 048
     Dates: start: 20221210
  26. DAPTOMYCIN [Suspect]
     Active Substance: DAPTOMYCIN
     Indication: Bacterial infection
     Dosage: 1 G
     Route: 042
     Dates: start: 20230211, end: 20230306
  27. ACUPAN [Suspect]
     Active Substance: NEFOPAM HYDROCHLORIDE
     Indication: Pain
     Dosage: UNK UNK, Q4H (ONE AMPOULE EVERY FOUR HOURS IF PAIN)
     Route: 048
     Dates: start: 20230106, end: 20230302
  28. ARANESP [Suspect]
     Active Substance: DARBEPOETIN ALFA
     Indication: Anaemia
     Dosage: 1 DOSAGE FORM, QW (300 MICROGRAM PER GRAM)
     Route: 058
     Dates: start: 20230213

REACTIONS (1)
  - Agranulocytosis [Recovered/Resolved]

NARRATIVE: CASE EVENT DATE: 20230201
